FAERS Safety Report 6778088-2 (Version None)
Quarter: 2010Q2

REPORT INFORMATION
  Report Type: 
  Country: None (occurrence: None)
  Receive Date: 20100618
  Receipt Date: 20100610
  Transmission Date: 20101027
  Serious: No
  Sender: FDA-Public Use
  Company Number: US-BIOGENIDEC-2010BI019212

PATIENT
  Age: 52 Year
  Sex: Female

DRUGS (1)
  1. AVONEX [Suspect]
     Indication: MULTIPLE SCLEROSIS
     Route: 030
     Dates: start: 20091201

REACTIONS (8)
  - FALL [None]
  - FOOT FRACTURE [None]
  - IMPAIRED HEALING [None]
  - JOINT SPRAIN [None]
  - PAIN IN EXTREMITY [None]
  - SWELLING [None]
  - TENDON INJURY [None]
  - WEIGHT BEARING DIFFICULTY [None]
